FAERS Safety Report 25192386 (Version 1)
Quarter: 2025Q2

REPORT INFORMATION
  Report Type: Spontaneous
  Country: US (occurrence: None)
  Receive Date: 20250414
  Receipt Date: 20250414
  Transmission Date: 20250716
  Serious: Yes (Hospitalization)
  Sender: FDA-CTU
  Company Number: None

PATIENT
  Sex: Female

DRUGS (2)
  1. EUFLEXXA [Suspect]
     Active Substance: HYALURONATE SODIUM
     Indication: Osteoarthritis
     Dosage: INJECT ONE SYRINGE INTRA-ARTICULARLY INTO BOTH KNEES EVERY WEEK FOR 3 WEEKS
     Route: 014
     Dates: start: 20250410
  2. DOXYCYCLINE [Suspect]
     Active Substance: DOXYCYCLINE

REACTIONS (1)
  - Nervous system disorder [None]
